FAERS Safety Report 7311055-9 (Version None)
Quarter: 2011Q1

REPORT INFORMATION
  Report Type: 
  Country: None (occurrence: None)
  Receive Date: 20110224
  Receipt Date: 20110215
  Transmission Date: 20110831
  Serious: Yes (Other)
  Sender: FDA-Public Use
  Company Number: ES-PFIZER INC-2011034956

PATIENT
  Sex: Female

DRUGS (1)
  1. SALAZOPYRIN [Suspect]
     Indication: DIARRHOEA
     Dosage: UNK

REACTIONS (1)
  - SWELLING FACE [None]
